FAERS Safety Report 12068300 (Version 1)
Quarter: 2016Q1

REPORT INFORMATION
  Report Type: Spontaneous
  Country: US (occurrence: US)
  Receive Date: 20160211
  Receipt Date: 20160211
  Transmission Date: 20160526
  Serious: No
  Sender: FDA-Public Use
  Company Number: US-SMITH AND NEPHEW, INC-2015SMT00506

PATIENT
  Sex: Male
  Weight: 130.61 kg

DRUGS (12)
  1. REGRANEX [Suspect]
     Active Substance: BECAPLERMIN
     Indication: WOUND
     Dosage: UNK, 2X/DAY
     Route: 061
     Dates: start: 20151008, end: 201510
  2. BUMEX [Concomitant]
     Active Substance: BUMETANIDE
  3. REGRANEX [Suspect]
     Active Substance: BECAPLERMIN
     Dosage: UNK, 2X/DAY
     Route: 061
  4. SIMVASTATIN. [Concomitant]
     Active Substance: SIMVASTATIN
  5. FENOFIBRIC ACID. [Concomitant]
     Active Substance: FENOFIBRIC ACID
  6. GABAPENTIN. [Concomitant]
     Active Substance: GABAPENTIN
  7. APIDRA [Concomitant]
     Active Substance: INSULIN GLULISINE
  8. JANUVIA [Concomitant]
     Active Substance: SITAGLIPTIN PHOSPHATE
  9. OXYBUTRIN [Concomitant]
     Active Substance: OXYBUTYNIN
  10. UNSPECIFIED MEDICATION(S) [Concomitant]
  11. UNSPECIFIED HEART MEDICATION [Concomitant]
     Active Substance: UNSPECIFIED INGREDIENT
  12. LANTUS [Concomitant]
     Active Substance: INSULIN GLARGINE

REACTIONS (5)
  - Application site discolouration [Unknown]
  - Skin disorder [Unknown]
  - Wound complication [Unknown]
  - Drug ineffective [Unknown]
  - Inappropriate schedule of drug administration [Unknown]

NARRATIVE: CASE EVENT DATE: 2015
